APPROVED DRUG PRODUCT: CAMBIA
Active Ingredient: DICLOFENAC POTASSIUM
Strength: 50MG
Dosage Form/Route: FOR SOLUTION;ORAL
Application: N022165 | Product #001 | TE Code: AB
Applicant: ASIO HOLDINGS LLC
Approved: Jun 17, 2009 | RLD: Yes | RS: Yes | Type: RX

PATENTS:
Patent 8097651 | Expires: Jun 16, 2026
Patent 7759394 | Expires: Jun 16, 2026
Patent 8927604 | Expires: Jun 16, 2026
Patent 9827197 | Expires: Jun 16, 2026